FAERS Safety Report 8799073 (Version 1)
Quarter: 2012Q4

REPORT INFORMATION
  Report Type: 
  Country: US (occurrence: US)
  Receive Date: 20120920
  Receipt Date: 20120920
  Transmission Date: 20130627
  Serious: No
  Sender: FDA-Public Use
  Company Number: US-ASTRAZENECA-2011SE59822

PATIENT
  Sex: Male
  Weight: 92.1 kg

DRUGS (10)
  1. TOPROL XL [Suspect]
     Route: 048
  2. LISINOPRIL [Suspect]
     Route: 048
  3. CENTRUM SILVER ORAL TABLET [Concomitant]
  4. KLOR-CON ORAL TABLET [Concomitant]
  5. FUROSEMIDE [Concomitant]
  6. HYDROXYZINE PAMOATE [Concomitant]
  7. NAPROXEN [Concomitant]
  8. XALATAN OPHTHALMIC SOLUTION [Concomitant]
  9. NORCO ORAL TABLET [Concomitant]
  10. NONSTEROIDALS [Concomitant]

REACTIONS (5)
  - Hypertension [Unknown]
  - Urinary retention [Recovered/Resolved]
  - Anaemia [Unknown]
  - Arthritis [Unknown]
  - Drug ineffective [Unknown]
